FAERS Safety Report 8546654-X (Version None)
Quarter: 2012Q3

REPORT INFORMATION
  Report Type: 
  Country: None (occurrence: None)
  Receive Date: 20120727
  Receipt Date: 20120124
  Transmission Date: 20120928
  Serious: No
  Sender: FDA-Public Use
  Company Number: US-ASTRAZENECA-2012SE04825

PATIENT
  Age: 42 Year
  Sex: Male
  Weight: 83.9 kg

DRUGS (8)
  1. SEROQUEL [Suspect]
     Dosage: TWO TABLETS AT NIGHT, BUT TAKES ANOTHER TABLET IF CANNOT SLEEP
     Route: 048
  2. SEROQUEL [Suspect]
     Route: 048
     Dates: start: 20100601
  3. SEROQUEL [Suspect]
     Indication: BIPOLAR DISORDER
     Route: 048
  4. SEROQUEL [Suspect]
     Indication: INSOMNIA
     Route: 048
  5. ABILIFY [Concomitant]
     Indication: BIPOLAR DISORDER
  6. SEROQUEL [Suspect]
     Route: 048
     Dates: start: 20100601
  7. LITHIUM CARBONATE [Concomitant]
     Indication: BIPOLAR DISORDER
  8. SEROQUEL [Suspect]
     Dosage: TWO TABLETS AT NIGHT, BUT TAKES ANOTHER TABLET IF CANNOT SLEEP
     Route: 048

REACTIONS (4)
  - OFF LABEL USE [None]
  - DRUG DOSE OMISSION [None]
  - MALAISE [None]
  - INSOMNIA [None]
